FAERS Safety Report 10078305 (Version 1)
Quarter: 2014Q2

REPORT INFORMATION
  Report Type: Spontaneous
  Country: US (occurrence: US)
  Receive Date: 20140415
  Receipt Date: 20140415
  Transmission Date: 20141212
  Serious: Yes (Hospitalization, Other)
  Sender: FDA-Public Use
  Company Number: US-PAR PHARMACEUTICAL, INC-2014SCPR008998

PATIENT
  Sex: 0

DRUGS (11)
  1. DONEPEZIL HYDROCHLORIDE [Suspect]
     Indication: COGNITIVE DISORDER
     Dosage: 5 MG, / DAY
     Route: 065
  2. DONEPEZIL HYDROCHLORIDE [Suspect]
     Dosage: 10 MG, / DAY
     Route: 065
  3. MEMANTINE [Concomitant]
     Indication: COGNITIVE DISORDER
     Dosage: 5 MG, / DAY
     Route: 065
  4. QUETIAPINE [Concomitant]
     Indication: SCHIZOPHRENIA, DISORGANISED TYPE
     Dosage: 150 MG, / DAY, AT BEDTIME
     Route: 065
  5. QUETIAPINE [Concomitant]
     Dosage: 500 MG, / DAY
     Route: 065
  6. LEVOTHYROXINE [Concomitant]
     Indication: PRODUCT USED FOR UNKNOWN INDICATION
     Dosage: 50 MCG, / DAY
     Route: 065
  7. FERROUS SULFATE [Concomitant]
     Indication: PRODUCT USED FOR UNKNOWN INDICATION
     Dosage: 325 MG, BID
     Route: 065
  8. ASCORBIC ACID [Concomitant]
     Indication: PRODUCT USED FOR UNKNOWN INDICATION
     Dosage: 250 MG, BID
     Route: 065
  9. AMLODIPINE [Concomitant]
     Indication: PRODUCT USED FOR UNKNOWN INDICATION
     Dosage: 5 MG, / DAY
     Route: 065
  10. SPIRONOLACTONE [Concomitant]
     Indication: PRODUCT USED FOR UNKNOWN INDICATION
     Dosage: 25 MG, / DAY
     Route: 065
  11. HYDROCHLOROTHIAZIDE [Concomitant]
     Indication: PRODUCT USED FOR UNKNOWN INDICATION
     Dosage: 25 MG, / DAY
     Route: 065

REACTIONS (1)
  - Mania [Recovered/Resolved]
